FAERS Safety Report 5303068-3 (Version None)
Quarter: 2007Q2

REPORT INFORMATION
  Report Type: 
  Country: None (occurrence: None)
  Receive Date: 20070420
  Receipt Date: 20070417
  Transmission Date: 20071010
  Serious: Yes (Hospitalization)
  Sender: FDA-Public Use
  Company Number: ZA-AVENTIS-200712702GDDC

PATIENT
  Age: 33 Year
  Sex: Female

DRUGS (5)
  1. KETEK [Suspect]
     Indication: SINUSITIS
     Route: 048
     Dates: start: 20070324
  2. KETEK [Suspect]
     Indication: TONSILLITIS
     Route: 048
     Dates: start: 20070324
  3. TAVANIC [Suspect]
     Indication: SINUSITIS
     Dosage: DOSE: UNK
     Route: 048
  4. TAVANIC [Suspect]
     Indication: TONSILLITIS
     Dosage: DOSE: UNK
     Route: 048
  5. ANTIVIRALS FOR SYSTEMIC USE [Concomitant]
     Dosage: DOSE: UNK

REACTIONS (1)
  - STEVENS-JOHNSON SYNDROME [None]
